FAERS Safety Report 22062128 (Version 1)
Quarter: 2023Q1

REPORT INFORMATION
  Report Type: Spontaneous
  Country: US (occurrence: US)
  Receive Date: 20230304
  Receipt Date: 20230304
  Transmission Date: 20230418
  Serious: Yes (Other)
  Sender: FDA-Public Use
  Company Number: US-drreddys-LIT/USA/23/0161985

PATIENT
  Age: 58 Year
  Sex: Female

DRUGS (5)
  1. LURASIDONE [Suspect]
     Active Substance: LURASIDONE
     Indication: Bipolar disorder
     Route: 048
  2. LURASIDONE [Suspect]
     Active Substance: LURASIDONE
     Dosage: INCREASED TO 40 MG/DAY
     Route: 048
  3. LURASIDONE [Suspect]
     Active Substance: LURASIDONE
     Dosage: DOSE WAS DECREASED
     Route: 048
  4. LURASIDONE [Suspect]
     Active Substance: LURASIDONE
     Dosage: DOSE WAS INCREASED
     Route: 048
  5. LURASIDONE [Suspect]
     Active Substance: LURASIDONE
     Dosage: DOSE WAS DECREASED AGAIN
     Route: 048

REACTIONS (1)
  - Urinary retention [Recovered/Resolved]
